FAERS Safety Report 7139256-3 (Version None)
Quarter: 2010Q4

REPORT INFORMATION
  Report Type: 
  Country: None (occurrence: None)
  Receive Date: 20101202
  Receipt Date: 20101202
  Transmission Date: 20110411
  Serious: Yes (Other)
  Sender: FDA-Public Use
  Company Number: None

PATIENT
  Age: 40 Year
  Sex: Female
  Weight: 74.8435 kg

DRUGS (1)
  1. XYREM [Suspect]
     Indication: NARCOLEPSY
     Dosage: 3 GRAM 2 PO
     Route: 048
     Dates: start: 20100601, end: 20100901

REACTIONS (4)
  - IMPAIRED HEALING [None]
  - OROPHARYNGEAL PAIN [None]
  - STOMATITIS [None]
  - THERMAL BURN [None]
